FAERS Safety Report 18588467 (Version 1)
Quarter: 2020Q4

REPORT INFORMATION
  Report Type: Spontaneous
  Country: US (occurrence: US)
  Receive Date: 20201207
  Receipt Date: 20201207
  Transmission Date: 20210114
  Serious: No
  Sender: FDA-Public Use
  Company Number: US-SUNOVION-2020SUN003598

PATIENT
  Sex: Female

DRUGS (1)
  1. LATUDA [Suspect]
     Active Substance: LURASIDONE HYDROCHLORIDE
     Indication: BIPOLAR DISORDER
     Dosage: 20 MG UNK
     Route: 048
     Dates: start: 20200918

REACTIONS (5)
  - Anxiety [Unknown]
  - Anger [Unknown]
  - Restlessness [Unknown]
  - Feeling hot [Unknown]
  - Palpitations [Unknown]
